FAERS Safety Report 7184243-2 (Version None)
Quarter: 2010Q4

REPORT INFORMATION
  Report Type: 
  Country: None (occurrence: None)
  Receive Date: 20101123
  Receipt Date: 20100809
  Transmission Date: 20110411
  Serious: No
  Sender: FDA-Public Use
  Company Number: 016945

PATIENT
  Sex: Female
  Weight: 55.8 kg

DRUGS (5)
  1. CIMZIA [Suspect]
     Indication: CROHN'S DISEASE
     Dosage: (400 MG 1X/2 WEEKS SUBCUTANEOUS)
     Route: 058
     Dates: start: 20100804
  2. PENTASA [Concomitant]
  3. FOSAMAX PLUS D [Concomitant]
  4. VITAMIN A [Concomitant]
  5. ATENOLOL [Concomitant]

REACTIONS (1)
  - FATIGUE [None]
